FAERS Safety Report 12715404 (Version 2)
Quarter: 2016Q4

REPORT INFORMATION
  Report Type: Report from Study
  Country: CA (occurrence: CA)
  Receive Date: 20160906
  Receipt Date: 20161005
  Transmission Date: 20170207
  Serious: Yes (Hospitalization, Other)
  Sender: FDA-Public Use
  Company Number: CA-AMGEN-CANSL2016115528

PATIENT
  Age: 74 Year
  Sex: Female
  Weight: 52.61 kg

DRUGS (5)
  1. PROLIA [Suspect]
     Active Substance: DENOSUMAB
     Dosage: UNK
     Route: 058
  2. COVERSYL [Concomitant]
     Active Substance: PERINDOPRIL
     Dosage: 5 MG, QD
     Route: 048
     Dates: start: 20131105
  3. PROLIA [Suspect]
     Active Substance: DENOSUMAB
     Indication: OSTEOPOROSIS POSTMENOPAUSAL
     Dosage: 60 MG, Q6MO
     Route: 058
     Dates: start: 20130312
  4. CRESTOR [Concomitant]
     Active Substance: ROSUVASTATIN CALCIUM
     Dosage: 5 MG, QD
     Route: 048
     Dates: start: 20130522
  5. EFFEXOR [Concomitant]
     Active Substance: VENLAFAXINE HYDROCHLORIDE
     Dosage: 75 MG, QD
     Route: 048
     Dates: start: 20100920

REACTIONS (3)
  - Papilloma viral infection [Unknown]
  - Squamous cell carcinoma of head and neck [Unknown]
  - Lung adenocarcinoma stage I [Not Recovered/Not Resolved]

NARRATIVE: CASE EVENT DATE: 201603
